FAERS Safety Report 10258456 (Version 1)
Quarter: 2014Q2

REPORT INFORMATION
  Report Type: Spontaneous
  Country: GB (occurrence: GB)
  Receive Date: 20140625
  Receipt Date: 20140625
  Transmission Date: 20141212
  Serious: Yes (Other)
  Sender: FDA-Public Use
  Company Number: GB-MYLANLABS-2014S1013984

PATIENT
  Age: 62 Year
  Sex: Male

DRUGS (2)
  1. PRAVASTATIN SODIUM [Suspect]
     Dosage: UNK
  2. NOXAFIL [Suspect]
     Dosage: 300 MG A DAY
     Route: 048
     Dates: start: 20140527

REACTIONS (2)
  - Heart transplant [Unknown]
  - Drug interaction [Unknown]
